FAERS Safety Report 20216171 (Version 9)
Quarter: 2022Q1

REPORT INFORMATION
  Report Type: Spontaneous
  Country: US (occurrence: US)
  Receive Date: 20211222
  Receipt Date: 20220308
  Transmission Date: 20220423
  Serious: Yes (Other)
  Sender: FDA-Public Use
  Company Number: US-UNITED THERAPEUTICS-UNT-2021-025175

PATIENT
  Sex: Male
  Weight: 79.365 kg

DRUGS (12)
  1. REMODULIN [Suspect]
     Active Substance: TREPROSTINIL
     Indication: Pulmonary arterial hypertension
     Dosage: UNK, CONTINUING
     Route: 058
     Dates: start: 20211112
  2. REMODULIN [Suspect]
     Active Substance: TREPROSTINIL
     Dosage: 0.006 ?G/KG, CONTINUING (PRE-FILLED WITH 2.8 ML PER CASSETTE, INFUSE AT A RATE OF 30 MCL PER HOUR)
     Route: 058
     Dates: start: 2021
  3. REMODULIN [Suspect]
     Active Substance: TREPROSTINIL
     Dosage: 0.007 ?G/KG, CONTINUING (PREFILLED WITH 3ML/CASSETTE, PUMP RATE 34 MCL/HOUR)
     Route: 058
     Dates: start: 2021, end: 202112
  4. REMODULIN [Suspect]
     Active Substance: TREPROSTINIL
     Indication: Pulmonary arterial hypertension
     Dosage: UNK, CONTINUING
     Route: 058
     Dates: start: 202112
  5. REMODULIN [Suspect]
     Active Substance: TREPROSTINIL
     Dosage: 0.009 ?G/KG, (PRE-FILLED WITH 2.2 ML/CASSETTE; PUMP RATE OF 18 MCL/HOUR), CONTINUING
     Route: 058
     Dates: start: 202112
  6. REMODULIN [Suspect]
     Active Substance: TREPROSTINIL
     Dosage: 0.009 ?G/KG, (PRE-FILLED WITH 2.8 ML/CASSETTE; PUMP RATE OF 18 MCL/HOUR), CONTINUING
     Route: 058
  7. REMODULIN [Suspect]
     Active Substance: TREPROSTINIL
     Dosage: 0.015 ?G/KG, CONTINUING (PRE-FILLED WITH 3 ML AND 2 ML/CASSETTE; PUMP RATE OF 30 MCL + 19 MCL/HR)
     Route: 058
     Dates: start: 202201
  8. REMODULIN [Suspect]
     Active Substance: TREPROSTINIL
     Indication: Pulmonary arterial hypertension
     Dosage: UNK, CONTINUING
     Route: 058
  9. REMODULIN [Suspect]
     Active Substance: TREPROSTINIL
     Dosage: 0.019 ?G/KG, CONTINUING (PRE-FILLED WITH 2ML/CASSETTE; PUMP RATE OF 19 MCL/ HOUR)
     Route: 058
  10. REMODULIN [Suspect]
     Active Substance: TREPROSTINIL
     Dosage: 0.020 ?G/KG, CONTINUING (PRE-FILLED WITH 2ML/CASSETTE; PUMP RATE OF 20 MCL/ HOUR)
     Route: 058
  11. ADCIRCA [Concomitant]
     Active Substance: TADALAFIL
     Indication: Pulmonary arterial hypertension
     Dosage: UNK
     Route: 065
  12. LETAIRIS [Concomitant]
     Active Substance: AMBRISENTAN
     Indication: Product used for unknown indication
     Dosage: UNK
     Route: 065

REACTIONS (39)
  - Syncope [Unknown]
  - Pulmonary arterial hypertension [Unknown]
  - Renal impairment [Unknown]
  - Micturition urgency [Unknown]
  - Dizziness [Unknown]
  - Panic reaction [Unknown]
  - Fluid retention [Unknown]
  - Muscle spasms [Unknown]
  - Presyncope [Unknown]
  - Sinus disorder [Not Recovered/Not Resolved]
  - Facial pain [Unknown]
  - Device failure [Unknown]
  - Device issue [Unknown]
  - Device difficult to use [Unknown]
  - Device malfunction [Unknown]
  - Device physical property issue [Unknown]
  - Device power source issue [Unknown]
  - Device infusion issue [Recovered/Resolved]
  - Device failure [Recovered/Resolved]
  - Device issue [Recovered/Resolved]
  - Device leakage [Unknown]
  - Infusion site reaction [Not Recovered/Not Resolved]
  - Infusion site pain [Recovering/Resolving]
  - Infusion site extravasation [Unknown]
  - Accidental exposure to product [Unknown]
  - Exposure via skin contact [Unknown]
  - Infusion site inflammation [Unknown]
  - Infusion site vesicles [Unknown]
  - Infusion site erythema [Unknown]
  - Infusion site swelling [Unknown]
  - Infusion site warmth [Unknown]
  - Mobility decreased [Unknown]
  - Infusion site cellulitis [Unknown]
  - Infusion site induration [Unknown]
  - Malaise [Unknown]
  - Infusion site infection [Recovering/Resolving]
  - Infusion site irritation [Unknown]
  - Peripheral swelling [Unknown]
  - Arthritis [Unknown]

NARRATIVE: CASE EVENT DATE: 20210101
